FAERS Safety Report 13064639 (Version 1)
Quarter: 2016Q4

REPORT INFORMATION
  Report Type: Spontaneous
  Country: US (occurrence: US)
  Receive Date: 20161225
  Receipt Date: 20161225
  Transmission Date: 20170207
  Serious: Yes (Disabling)
  Sender: FDA-Public Use
  Company Number: None

PATIENT
  Age: 15 Year
  Sex: Male
  Weight: 63 kg

DRUGS (1)
  1. ABILIFY [Suspect]
     Active Substance: ARIPIPRAZOLE
     Indication: DEPRESSION
     Dosage: ?          QUANTITY:1 TABLET(S);?
     Route: 048
     Dates: start: 20030601, end: 20041231

REACTIONS (5)
  - Illiteracy [None]
  - Tremor [None]
  - Movement disorder [None]
  - Memory impairment [None]
  - Sleep paralysis [None]

NARRATIVE: CASE EVENT DATE: 20030601
